FAERS Safety Report 4715923-3 (Version None)
Quarter: 2005Q3

REPORT INFORMATION
  Report Type: 
  Country: None (occurrence: None)
  Receive Date: 20050718
  Receipt Date: 20050310
  Transmission Date: 20060218
  Serious: Yes (Hospitalization)
  Sender: FDA-Public Use
  Company Number: US-MERCK-0503USA02338

PATIENT
  Age: 68 Year
  Sex: Male
  Weight: 105 kg

DRUGS (18)
  1. VIOXX [Suspect]
     Indication: ARTHRITIS
     Route: 048
     Dates: start: 20000501, end: 20030601
  2. VIOXX [Suspect]
     Route: 048
     Dates: start: 20030601, end: 20040901
  3. VIOXX [Suspect]
     Indication: RHEUMATOID ARTHRITIS
     Route: 048
     Dates: start: 20000501, end: 20030601
  4. VIOXX [Suspect]
     Route: 048
     Dates: start: 20030601, end: 20040901
  5. PRINZIDE [Concomitant]
     Route: 065
  6. ATENOLOL [Concomitant]
     Route: 065
  7. COMBIVENT [Concomitant]
     Route: 065
  8. GARLIC EXTRACT [Concomitant]
     Route: 065
  9. VITAMIN E [Concomitant]
     Route: 065
  10. OMEGA-3 MARINE TRIGLYCERIDES [Concomitant]
     Route: 065
  11. ASCORBIC ACID [Concomitant]
     Route: 065
  12. THERAGRAN TABLETS ADVANCED FORMULA [Concomitant]
     Route: 065
  13. LIPITOR [Concomitant]
     Route: 065
  14. ACIPHEX [Concomitant]
     Route: 065
  15. DIHYDROERGOTAMINE MESYLATE [Concomitant]
     Route: 065
  16. GLUCOSAMINE [Concomitant]
     Route: 065
  17. [THERAPY UNSPECIFIED] [Concomitant]
     Route: 065
     Dates: start: 19850101
  18. HYDROXYCHLOROQUINE SULFATE [Concomitant]
     Route: 065

REACTIONS (20)
  - ACUTE MYOCARDIAL INFARCTION [None]
  - AORTIC ATHEROSCLEROSIS [None]
  - ARTERIOSCLEROSIS [None]
  - BUNDLE BRANCH BLOCK RIGHT [None]
  - CHRONIC OBSTRUCTIVE PULMONARY DISEASE [None]
  - CORONARY ARTERY ATHEROSCLEROSIS [None]
  - DILATATION ATRIAL [None]
  - DIVERTICULUM [None]
  - ERECTILE DYSFUNCTION [None]
  - HAEMORRHOIDS [None]
  - HEADACHE [None]
  - HIP ARTHROPLASTY [None]
  - HIP SURGERY [None]
  - HYPERTENSION [None]
  - LIBIDO DECREASED [None]
  - PANIC ATTACK [None]
  - SLEEP APNOEA SYNDROME [None]
  - SLEEP DISORDER [None]
  - VENTRICULAR HYPERTROPHY [None]
  - WEIGHT INCREASED [None]
